APPROVED DRUG PRODUCT: CYANOCOBALAMIN
Active Ingredient: CYANOCOBALAMIN
Strength: 1MG/ML
Dosage Form/Route: INJECTABLE;INJECTION
Application: A040451 | Product #001
Applicant: MYLAN INSTITUTIONAL LLC
Approved: Sep 23, 2003 | RLD: No | RS: No | Type: DISCN